FAERS Safety Report 25894873 (Version 1)
Quarter: 2025Q4

REPORT INFORMATION
  Report Type: Spontaneous
  Country: GB (occurrence: GB)
  Receive Date: 20251008
  Receipt Date: 20251008
  Transmission Date: 20260118
  Serious: Yes (Other)
  Sender: HIKMA
  Company Number: None

PATIENT
  Age: 62 Year
  Sex: Female
  Weight: 62 kg

DRUGS (4)
  1. FENTANYL [Suspect]
     Active Substance: FENTANYL
     Indication: Induction of anaesthesia
     Dosage: 250 MICROGRAM
     Route: 065
     Dates: start: 20250922, end: 20250922
  2. MIDAZOLAM [Suspect]
     Active Substance: MIDAZOLAM
     Indication: Induction of anaesthesia
     Dosage: 2 MILLIGRAM
     Route: 065
     Dates: start: 20250922, end: 20250922
  3. PROPOFOL [Suspect]
     Active Substance: PROPOFOL
     Indication: Induction of anaesthesia
     Dosage: 80 MILLIGRAM
     Route: 065
     Dates: start: 20250922, end: 20250922
  4. ROCURONIUM [Suspect]
     Active Substance: ROCURONIUM BROMIDE
     Indication: Induction of anaesthesia
     Dosage: 80 MILLIGRAM
     Route: 065
     Dates: start: 20250922, end: 20250922

REACTIONS (4)
  - Skin warm [Recovered/Resolved]
  - Rash erythematous [Recovered/Resolved]
  - Blood pressure decreased [Recovered/Resolved]
  - Tachycardia [Recovered/Resolved]

NARRATIVE: CASE EVENT DATE: 20250922
